FAERS Safety Report 5288895-3 (Version None)
Quarter: 2007Q2

REPORT INFORMATION
  Report Type: 
  Country: None (occurrence: None)
  Receive Date: 20070405
  Receipt Date: 20070328
  Transmission Date: 20071010
  Serious: Yes (Hospitalization, Other)
  Sender: FDA-Public Use
  Company Number: JP-PFIZER INC-2005099630

PATIENT
  Age: 68 Year
  Sex: Female

DRUGS (13)
  1. IRINOTECAN HCL [Suspect]
     Indication: COLON CANCER
     Dosage: DAILY DOSE:100MG
     Route: 042
     Dates: start: 20041116, end: 20041228
  2. FLUOROURACIL [Concomitant]
     Indication: COLON CANCER
     Dosage: DAILY DOSE:1000MG
     Route: 013
     Dates: start: 20041116, end: 20041130
  3. PURSENNID [Concomitant]
     Indication: CONSTIPATION
     Dosage: DAILY DOSE:12MG
     Route: 048
  4. VITAMEDIN S [Concomitant]
     Indication: NEUROPATHY PERIPHERAL
     Dosage: TEXT:1 DF
     Route: 048
     Dates: start: 20041116
  5. MAGNESIUM OXIDE [Concomitant]
     Indication: CONSTIPATION
     Dosage: DAILY DOSE:.4GRAM
     Route: 048
     Dates: start: 20041116
  6. SEVEN EP [Concomitant]
     Indication: DYSPEPSIA
     Dosage: TEXT:1 DF
     Route: 048
     Dates: start: 20041116
  7. CYANOCOBALAMIN [Concomitant]
     Indication: NEUROPATHY PERIPHERAL
     Dosage: DAILY DOSE:250MCG
     Route: 048
  8. GASTER [Concomitant]
     Indication: GASTRITIS
     Dosage: DAILY DOSE:20MG
     Route: 048
  9. EPIVIR [Concomitant]
     Indication: HIV INFECTION
     Dosage: DAILY DOSE:150MG
     Route: 048
  10. ZERIT [Concomitant]
     Indication: HIV INFECTION
     Dosage: DAILY DOSE:30MG
     Route: 048
  11. KALETRA [Concomitant]
     Indication: HIV INFECTION
     Dosage: TEXT:3 DF
     Route: 048
  12. ENSURE [Concomitant]
     Indication: NUTRITIONAL SUPPORT
     Dosage: TEXT:1 DF
     Route: 048
  13. PENTAGIN [Concomitant]
     Indication: ANALGESIC THERAPY
     Dosage: DAILY DOSE:25MG
     Route: 048
     Dates: start: 20041221

REACTIONS (3)
  - INTERSTITIAL LUNG DISEASE [None]
  - LEUKOPENIA [None]
  - NEUTROPENIA [None]
